FAERS Safety Report 5158535-2 (Version None)
Quarter: 2006Q4

REPORT INFORMATION
  Report Type: 
  Country: None (occurrence: None)
  Receive Date: 20061117
  Receipt Date: 20061106
  Transmission Date: 20070319
  Serious: Yes (Hospitalization)
  Sender: FDA-Public Use
  Company Number: CAWYE986721SEP06

PATIENT
  Age: 38 Year
  Sex: Female

DRUGS (12)
  1. EFFEXOR XR [Suspect]
     Indication: ANXIETY
     Dosage: 75 MG 1X PER 1 DAY
     Route: 048
     Dates: start: 20060501
  2. EFFEXOR XR [Suspect]
     Indication: DEPRESSION
     Dosage: 75 MG 1X PER 1 DAY
     Route: 048
     Dates: start: 20060501
  3. ALCOHOL (ETHANOL) [Suspect]
  4. TYLENOL W/ CODEINE NO. 3 [Suspect]
     Indication: BACK INJURY
     Dosage: PRN
  5. TRAZODONE HCL [Concomitant]
  6. LORAZEPAM [Concomitant]
  7. METOPROLOL TARTRATE [Concomitant]
  8. RAMIPRIL [Concomitant]
  9. NITROLINGUAL-PUMPSPRAY (GLYCERYL TRINITRATE) [Concomitant]
  10. OMEPRAZOLE [Concomitant]
  11. LIPITOR [Concomitant]
  12. BUPROPION HYDROCHLORIDE [Concomitant]

REACTIONS (5)
  - BLOOD VISCOSITY INCREASED [None]
  - HEART RATE ABNORMAL [None]
  - MYOCARDIAL INFARCTION [None]
  - STRESS [None]
  - THROMBOSIS [None]
